FAERS Safety Report 8342143-6 (Version None)
Quarter: 2012Q2

REPORT INFORMATION
  Report Type: 
  Country: None (occurrence: None)
  Receive Date: 20120507
  Receipt Date: 20120426
  Transmission Date: 20120825
  Serious: Yes (Death)
  Sender: FDA-Public Use
  Company Number: US-BAXTER-2012BAX003507

PATIENT
  Sex: Male

DRUGS (1)
  1. ARALAST NP [Suspect]

REACTIONS (3)
  - EMPHYSEMA [None]
  - MALNUTRITION [None]
  - NECROTISING FASCIITIS [None]
